FAERS Safety Report 8244357-2 (Version None)
Quarter: 2012Q1

REPORT INFORMATION
  Report Type: 
  Country: None (occurrence: None)
  Receive Date: 20120329
  Receipt Date: 20120326
  Transmission Date: 20120608
  Serious: Yes (Other)
  Sender: FDA-Public Use
  Company Number: BR-PFIZER INC-2012077344

PATIENT
  Age: 60 Year
  Sex: Female
  Weight: 75 kg

DRUGS (3)
  1. GENOTROPIN [Suspect]
     Indication: OFF LABEL USE
     Dosage: UNK
     Route: 058
     Dates: start: 20090101
  2. CENTRUM [Concomitant]
     Indication: VITAMIN SUPPLEMENTATION
     Dosage: ONE TABLET DAILY
  3. NEBIDO [Concomitant]
     Indication: BLOOD TESTOSTERONE ABNORMAL
     Dosage: UNK

REACTIONS (2)
  - LOSS OF CONSCIOUSNESS [None]
  - SYNCOPE [None]
